FAERS Safety Report 14980516 (Version 6)
Quarter: 2018Q3

REPORT INFORMATION
  Report Type: Spontaneous
  Country: US (occurrence: US)
  Receive Date: 20180606
  Receipt Date: 20180907
  Transmission Date: 20181010
  Serious: No
  Sender: FDA-Public Use
  Company Number: US-ACTELION-A-US2018-173392

PATIENT
  Age: 58 Year
  Sex: Male
  Weight: 87.98 kg

DRUGS (5)
  1. ADCIRCA [Concomitant]
     Active Substance: TADALAFIL
  2. REMODULIN [Concomitant]
     Active Substance: TREPROSTINIL
  3. LETAIRIS [Concomitant]
     Active Substance: AMBRISENTAN
  4. OPSUMIT [Suspect]
     Active Substance: MACITENTAN
     Indication: PULMONARY ARTERIAL HYPERTENSION
     Dosage: 10 MG, QD
     Route: 048
  5. ELIQUIS [Concomitant]
     Active Substance: APIXABAN

REACTIONS (13)
  - Nausea [Unknown]
  - Catheter site warmth [Unknown]
  - Food allergy [Unknown]
  - Abdominal discomfort [Unknown]
  - Catheter site discolouration [Unknown]
  - Decreased appetite [Unknown]
  - Catheter site rash [Unknown]
  - Vomiting [Unknown]
  - Nasal congestion [Unknown]
  - Catheter site pruritus [Unknown]
  - Diarrhoea [Unknown]
  - Catheter site erythema [Unknown]
  - Catheter site inflammation [Unknown]
